FAERS Safety Report 8804756 (Version 1)
Quarter: 2012Q4

REPORT INFORMATION
  Report Type: Spontaneous
  Country: US (occurrence: None)
  Receive Date: 20120919
  Receipt Date: 20120919
  Transmission Date: 20130627
  Serious: No
  Sender: FDA-Public Use
  Company Number: None

PATIENT
  Sex: Male
  Weight: 106 kg

DRUGS (1)
  1. IMMUNE GLOBULIN NOS [Suspect]
     Indication: CIDP
     Route: 041
     Dates: start: 20120828, end: 20120828

REACTIONS (3)
  - Wheezing [None]
  - Cough [None]
  - Respiratory disorder [None]
